FAERS Safety Report 4951388-4 (Version None)
Quarter: 2006Q1

REPORT INFORMATION
  Report Type: 
  Country: None (occurrence: None)
  Receive Date: 20060317
  Receipt Date: 20060221
  Transmission Date: 20060701
  Serious: Yes (Hospitalization)
  Sender: FDA-Public Use
  Company Number: US200511001226

PATIENT
  Age: 51 Year
  Sex: Male
  Weight: 99.8 kg

DRUGS (8)
  1. ZYPREXA [Suspect]
     Dosage: SEE IMAGE
     Dates: start: 20010101, end: 20020101
  2. ZYPREXA [Suspect]
     Dosage: SEE IMAGE
     Dates: start: 20010118, end: 20030101
  3. ZYPREXA [Suspect]
     Dosage: SEE IMAGE
     Dates: start: 20020516, end: 20050601
  4. ARIPIPRAZOLE [Concomitant]
  5. RISPERIDONE [Concomitant]
  6. THIORIDAZINE HCL [Concomitant]
  7. BUPROPION HCL [Concomitant]
  8. MIRTAZAPINE [Concomitant]

REACTIONS (5)
  - ANHEDONIA [None]
  - DEEP VEIN THROMBOSIS [None]
  - DIABETES MELLITUS NON-INSULIN-DEPENDENT [None]
  - EMOTIONAL DISTRESS [None]
  - GENERAL PHYSICAL HEALTH DETERIORATION [None]
